FAERS Safety Report 6947615-4 (Version None)
Quarter: 2010Q3

REPORT INFORMATION
  Report Type: 
  Country: None (occurrence: None)
  Receive Date: 20100828
  Receipt Date: 20091019
  Transmission Date: 20110219
  Serious: No
  Sender: FDA-Public Use
  Company Number: US-ABBOTT-09P-163-0599574-00

PATIENT
  Sex: Female
  Weight: 74.91 kg

DRUGS (4)
  1. NIASPAN [Suspect]
     Indication: BLOOD CHOLESTEROL INCREASED
     Route: 048
     Dates: start: 20090923
  2. ZEGERID [Concomitant]
     Indication: IMPAIRED GASTRIC EMPTYING
  3. LISINOPRIL [Concomitant]
     Indication: HYPERTENSION
     Route: 048
  4. LORAZEPAM [Concomitant]
     Indication: SLEEP DISORDER THERAPY

REACTIONS (2)
  - ERYTHEMA [None]
  - FLUSHING [None]
